FAERS Safety Report 14875675 (Version 1)
Quarter: 2018Q2

REPORT INFORMATION
  Report Type: Spontaneous
  Country: US (occurrence: US)
  Receive Date: 20180424
  Receipt Date: 20180424
  Transmission Date: 20180711
  Serious: Yes (Hospitalization)
  Sender: FDA-Public Use
  Company Number: None

PATIENT
  Age: 72 Year
  Sex: Female
  Weight: 49.9 kg

DRUGS (1)
  1. IRON SUCROSE [Suspect]
     Active Substance: IRON SUCROSE
     Indication: ANAEMIA
     Route: 040
     Dates: start: 20180129, end: 20180129

REACTIONS (9)
  - Infusion related reaction [None]
  - Femoral pulse abnormal [None]
  - Radial pulse abnormal [None]
  - Pulse abnormal [None]
  - Hypotension [None]
  - Dyspnoea [None]
  - Refusal of treatment by patient [None]
  - Confusional state [None]
  - Chest pain [None]

NARRATIVE: CASE EVENT DATE: 20180129
